FAERS Safety Report 16846789 (Version 1)
Quarter: 2019Q3

REPORT INFORMATION
  Report Type: Spontaneous
  Country: GB (occurrence: GB)
  Receive Date: 20190924
  Receipt Date: 20190924
  Transmission Date: 20191005
  Serious: Yes (Other)
  Sender: FDA-Public Use
  Company Number: GB-MYLANLABS-2019M1088804

PATIENT
  Sex: Female

DRUGS (4)
  1. TRAMADOL. [Suspect]
     Active Substance: TRAMADOL
     Indication: NECK PAIN
     Dosage: UNK, 1/DAY
     Route: 065
     Dates: start: 201402, end: 201610
  2. CO-DYDRAMOL [Suspect]
     Active Substance: ACETAMINOPHEN\DIHYDROCODEINE
     Indication: NECK PAIN
     Dosage: UNK, 5/DAY
     Route: 048
     Dates: start: 201402, end: 201610
  3. CODEINE [Suspect]
     Active Substance: CODEINE
     Indication: NECK PAIN
     Dosage: UNK, 5/DAY
     Route: 065
     Dates: start: 201402, end: 201610
  4. NAPROXEN. [Suspect]
     Active Substance: NAPROXEN
     Indication: NECK PAIN
     Dosage: UNK UNK, 5/DAY
     Route: 065
     Dates: start: 201402, end: 201610

REACTIONS (10)
  - Drug ineffective [Unknown]
  - Formication [Unknown]
  - Haemoglobin decreased [Unknown]
  - Disturbance in attention [Unknown]
  - Gastric disorder [Unknown]
  - Gastrointestinal motility disorder [Unknown]
  - Dizziness [Unknown]
  - Mental disorder [Unknown]
  - Insomnia [Unknown]
  - Drug dependence [Unknown]
